FAERS Safety Report 11156145 (Version 1)
Quarter: 2015Q2

REPORT INFORMATION
  Report Type: Spontaneous
  Country: US (occurrence: None)
  Receive Date: 20150601
  Receipt Date: 20150601
  Transmission Date: 20150821
  Serious: Yes (Life-Threatening, Hospitalization)
  Sender: FDA-Public Use
  Company Number: None

PATIENT
  Age: 66 Year
  Sex: Female
  Weight: 79.38 kg

DRUGS (8)
  1. TUMERIC [Concomitant]
  2. CYCLOBENZAPRINE [Concomitant]
     Active Substance: CYCLOBENZAPRINE
  3. MELOXICAM. [Concomitant]
     Active Substance: MELOXICAM
  4. NEXIUM [Concomitant]
     Active Substance: ESOMEPRAZOLE MAGNESIUM
  5. TAMOXIFEN [Concomitant]
     Active Substance: TAMOXIFEN
  6. VITAMIN 3 [Concomitant]
  7. VITAMIN D [Concomitant]
     Active Substance: CHOLECALCIFEROL
  8. INVOKANA [Suspect]
     Active Substance: CANAGLIFLOZIN
     Indication: TYPE 2 DIABETES MELLITUS
     Route: 048

REACTIONS (3)
  - Crying [None]
  - Blood pressure abnormal [None]
  - Nephrolithiasis [None]

NARRATIVE: CASE EVENT DATE: 20140522
